FAERS Safety Report 4800147-1 (Version None)
Quarter: 2005Q4

REPORT INFORMATION
  Report Type: 
  Country: None (occurrence: None)
  Receive Date: 20051017
  Receipt Date: 20050829
  Transmission Date: 20060501
  Serious: Yes (Hospitalization)
  Sender: FDA-Public Use
  Company Number: PHBS2005CL12597

PATIENT
  Age: 91 Year
  Sex: Female

DRUGS (1)
  1. TAREG [Suspect]
     Indication: HYPERTENSION
     Dates: start: 20050101

REACTIONS (4)
  - ARTERIAL OCCLUSIVE DISEASE [None]
  - CONDITION AGGRAVATED [None]
  - HYPERTENSION [None]
  - PNEUMONIA [None]
